FAERS Safety Report 9114847 (Version 1)
Quarter: 2013Q1

REPORT INFORMATION
  Report Type: Spontaneous
  Country: CL (occurrence: CL)
  Receive Date: 20130208
  Receipt Date: 20130208
  Transmission Date: 20140127
  Serious: Yes (Other)
  Sender: FDA-Public Use
  Company Number: CL-PFIZER INC-2013023625

PATIENT
  Age: 84 Year
  Sex: Female

DRUGS (6)
  1. XALATAN [Suspect]
     Indication: GLAUCOMA
     Dosage: UNK
     Dates: start: 2010
  2. ALPHAGAN [Concomitant]
     Dosage: UNK
  3. NEO-SINTROM [Concomitant]
  4. TRITTICO [Concomitant]
  5. EUTIROX [Concomitant]
     Dosage: 75 UG
  6. ENALAPRIL [Concomitant]
     Dosage: 5 MEQ/L

REACTIONS (2)
  - Visual impairment [Not Recovered/Not Resolved]
  - Hearing impaired [Not Recovered/Not Resolved]
